FAERS Safety Report 6112719-5 (Version None)
Quarter: 2009Q1

REPORT INFORMATION
  Report Type: 
  Country: None (occurrence: None)
  Receive Date: 20090312
  Receipt Date: 20090304
  Transmission Date: 20090719
  Serious: Yes (Other)
  Sender: FDA-Public Use
  Company Number: GB-AMGEN-US337182

PATIENT
  Age: 50 Year
  Sex: Female

DRUGS (5)
  1. ENBREL [Suspect]
     Indication: ANKYLOSING SPONDYLITIS
     Dosage: 50MG, FREQUENCY UNSPECIFIED
     Route: 058
     Dates: start: 20081029, end: 20081101
  2. TRAMADOL [Concomitant]
     Dosage: 50MG, FREQUENCY UNSPECIFIED
     Route: 048
  3. ESOMEPRAZOLE [Concomitant]
     Dosage: 20MG, FREQUENCY UNSPECIFIED
     Route: 048
  4. ARCOXIA [Concomitant]
     Dosage: UNKNOWN
     Route: 048
  5. ACETAMINOPHEN W/ CODEINE [Concomitant]
     Dosage: UNKNOWN
     Route: 048

REACTIONS (2)
  - HEADACHE [None]
  - PARANOIA [None]
